FAERS Safety Report 9672434 (Version 2)
Quarter: 2013Q4

REPORT INFORMATION
  Report Type: Spontaneous
  Country: ES (occurrence: None)
  Receive Date: 20131105
  Receipt Date: 20131115
  Transmission Date: 20140711
  Serious: Yes (Other)
  Sender: FDA-Public Use
  Company Number: AUR-APL-2013-09100

PATIENT
  Age: 57 Year
  Sex: Male

DRUGS (6)
  1. LEVOFLOXACIN [Suspect]
     Indication: MYCOBACTERIAL INFECTION
  2. AZITHROMYCIN (AZITHROMYCIN) [Suspect]
     Indication: MYCOBACTERIAL INFECTION
  3. ETHAMBUTOL (ETHAMBUTOL) [Suspect]
     Indication: MYCOBACTERIAL INFECTION
  4. ISONIAZID (ISONIAZID) [Suspect]
     Indication: MYCOBACTERIAL INFECTION
  5. PYRAZINAMIDE (PYRAZINAMIDE) [Suspect]
     Indication: MYCOBACTERIAL INFECTION
  6. RIFAMPICIN (RIFAMPICIN) [Suspect]
     Indication: MYCOBACTERIAL INFECTION

REACTIONS (5)
  - Acute hepatic failure [None]
  - Skin lesion [None]
  - Pyrexia [None]
  - Weight decreased [None]
  - Drug-induced liver injury [None]
